FAERS Safety Report 5565051-2 (Version None)
Quarter: 2007Q4

REPORT INFORMATION
  Report Type: 
  Country: None (occurrence: None)
  Receive Date: 20071218
  Receipt Date: 20071210
  Transmission Date: 20080405
  Serious: Yes (Other)
  Sender: FDA-Public Use
  Company Number: NO-BRISTOL-MYERS SQUIBB COMPANY-14008478

PATIENT
  Age: 23 Year
  Sex: Female

DRUGS (5)
  1. CARBOPLATIN [Suspect]
     Indication: OVARIAN CANCER
     Dosage: AUC5
     Dates: start: 20060101, end: 20060401
  2. TAXOL [Suspect]
     Indication: OVARIAN CANCER
     Dosage: SHE RECEIVED FOUR TREATMENT CYCLES AS ADJUVANT THERAPY TO CARBOPLATIN.
     Dates: start: 20060101, end: 20060401
  3. LAMICTAL [Concomitant]
  4. LYRICA [Concomitant]
     Indication: PAIN
     Dates: start: 20060101
  5. PROGYNOVA [Concomitant]

REACTIONS (2)
  - BONE INFARCTION [None]
  - NEUROPATHY PERIPHERAL [None]
